FAERS Safety Report 9215711 (Version 8)
Quarter: 2014Q3

REPORT INFORMATION
  Report Type: Report from Study
  Country: US (occurrence: US)
  Receive Date: 20130408
  Receipt Date: 20140909
  Transmission Date: 20150326
  Serious: Yes (Hospitalization)
  Sender: FDA-Public Use
  Company Number: US-BIOGENIDEC-2013BI030014

PATIENT
  Age: 33 Year
  Sex: Female
  Weight: 83 kg

DRUGS (12)
  1. ACETAMINOPHEN. [Concomitant]
     Active Substance: ACETAMINOPHEN
     Route: 048
  2. ASPIRIN. [Concomitant]
     Active Substance: ASPIRIN
     Route: 048
  3. FOLIC ACID. [Concomitant]
     Active Substance: FOLIC ACID
  4. DRISDOL [Concomitant]
     Active Substance: ERGOCALCIFEROL
  5. BUTALBITAL [Concomitant]
     Active Substance: BUTALBITAL
     Route: 048
  6. CODEINE [Concomitant]
     Active Substance: CODEINE
     Indication: HEADACHE
     Route: 048
  7. AVONEX [Suspect]
     Active Substance: INTERFERON BETA-1A
     Indication: MULTIPLE SCLEROSIS
     Route: 030
     Dates: start: 201303
  8. AVONEX [Suspect]
     Active Substance: INTERFERON BETA-1A
     Indication: MULTIPLE SCLEROSIS
     Route: 030
     Dates: end: 20130330
  9. METHYLPREDNISOLONE [Concomitant]
     Active Substance: METHYLPREDNISOLONE
     Route: 042
  10. VITAMIN B [Concomitant]
     Active Substance: VITAMIN B
  11. AVONEX [Suspect]
     Active Substance: INTERFERON BETA-1A
     Indication: MULTIPLE SCLEROSIS
     Route: 030
     Dates: start: 20130304, end: 20130323
  12. AVONEX [Suspect]
     Active Substance: INTERFERON BETA-1A
     Indication: MULTIPLE SCLEROSIS
     Route: 030
     Dates: start: 20130323, end: 20130325

REACTIONS (13)
  - Confusional state [Unknown]
  - Aspiration [Recovered/Resolved]
  - Hyperammonaemia [Recovered/Resolved]
  - Hepatic function abnormal [Recovered/Resolved]
  - Pain [Not Recovered/Not Resolved]
  - Loss of consciousness [Unknown]
  - Unresponsive to stimuli [Unknown]
  - Fatigue [Not Recovered/Not Resolved]
  - Altered state of consciousness [Unknown]
  - Hypersensitivity [Recovered/Resolved]
  - Respiratory arrest [Recovered/Resolved]
  - Convulsion [Recovered/Resolved]
  - Tremor [Unknown]

NARRATIVE: CASE EVENT DATE: 20130323
